FAERS Safety Report 8559921-0 (Version None)
Quarter: 2012Q3

REPORT INFORMATION
  Report Type: 
  Country: None (occurrence: None)
  Receive Date: 20120802
  Receipt Date: 20120729
  Transmission Date: 20120928
  Serious: Yes (Other)
  Sender: FDA-Public Use
  Company Number: PHHY2012CN063706

PATIENT
  Age: 64 Year
  Sex: Female

DRUGS (2)
  1. MIACALCIN [Suspect]
     Dosage: 3 DF, UNK
  2. SANWU [Concomitant]
     Indication: RHEUMATOID ARTHRITIS
     Dosage: 5 G, BID
     Route: 048

REACTIONS (3)
  - CYANOSIS [None]
  - DRY MOUTH [None]
  - BLOOD PRESSURE INCREASED [None]
